FAERS Safety Report 19900499 (Version 2)
Quarter: 2021Q4

REPORT INFORMATION
  Report Type: Report from Study
  Country: CA (occurrence: CA)
  Receive Date: 20210929
  Receipt Date: 20211027
  Transmission Date: 20220303
  Serious: Yes (Other)
  Sender: FDA-Public Use
  Company Number: CA-OTSUKA-2021_016458

PATIENT
  Sex: Male

DRUGS (1)
  1. CEDAZURIDINE\DECITABINE [Suspect]
     Active Substance: CEDAZURIDINE\DECITABINE
     Indication: Myelodysplastic syndrome
     Dosage: UNK
     Route: 065
     Dates: start: 20210125

REACTIONS (7)
  - Pancytopenia [Recovered/Resolved]
  - General physical health deterioration [Unknown]
  - Eastern Cooperative Oncology Group performance status worsened [Unknown]
  - Neutrophil count abnormal [Unknown]
  - Constipation [Unknown]
  - Therapy interrupted [Unknown]
  - Product use issue [Unknown]
